FAERS Safety Report 4813677-3 (Version None)
Quarter: 2005Q4

REPORT INFORMATION
  Report Type: 
  Country: None (occurrence: None)
  Receive Date: 20051028
  Receipt Date: 20050426
  Transmission Date: 20060501
  Serious: No
  Sender: FDA-Public Use
  Company Number: US-GLAXOSMITHKLINE-A0555831A

PATIENT
  Age: 32 Year
  Sex: Female

DRUGS (2)
  1. IMITREX [Suspect]
     Indication: MIGRAINE
     Dosage: 5MG AS REQUIRED
     Route: 045
     Dates: start: 20050401
  2. FIORICET [Concomitant]

REACTIONS (5)
  - CARDIAC FLUTTER [None]
  - FLUSHING [None]
  - PAIN [None]
  - PAIN IN EXTREMITY [None]
  - PARAESTHESIA [None]
